FAERS Safety Report 6948922-1 (Version None)
Quarter: 2010Q3

REPORT INFORMATION
  Report Type: 
  Country: None (occurrence: None)
  Receive Date: 20100828
  Receipt Date: 20091118
  Transmission Date: 20110219
  Serious: No
  Sender: FDA-Public Use
  Company Number: US-ABBOTT-09P-163-0610128-00

PATIENT
  Sex: Male
  Weight: 103.51 kg

DRUGS (7)
  1. NIASPAN [Suspect]
     Indication: HIGH DENSITY LIPOPROTEIN DECREASED
     Dates: start: 20090910, end: 20091001
  2. NIASPAN [Suspect]
     Dates: start: 20091001
  3. CARDURA [Concomitant]
     Indication: HYPERTENSION
  4. PROSCAR [Concomitant]
     Indication: PROSTATOMEGALY
  5. LISINOPRIL [Concomitant]
     Indication: HYPERTENSION
  6. TRILEPTAL [Concomitant]
     Indication: NERVE INJURY
     Dates: start: 20040101
  7. IBUPROFEN [Concomitant]
     Indication: NERVE INJURY
     Dosage: AFTER DINNER
     Dates: start: 20080101

REACTIONS (4)
  - FLUSHING [None]
  - HIGH DENSITY LIPOPROTEIN ABNORMAL [None]
  - JOINT SWELLING [None]
  - SKIN BURNING SENSATION [None]
